FAERS Safety Report 19151283 (Version 3)
Quarter: 2021Q2

REPORT INFORMATION
  Report Type: Spontaneous
  Country: US (occurrence: US)
  Receive Date: 20210419
  Receipt Date: 20210421
  Transmission Date: 20210717
  Serious: No
  Sender: FDA-Public Use
  Company Number: US-SA-2021SA115431

PATIENT
  Age: 69 Year
  Sex: Male

DRUGS (3)
  1. LANTUS [Suspect]
     Active Substance: INSULIN GLARGINE
     Dosage: 12 IU, QOD (EVERY OTHER EVENING)
     Route: 065
  2. LANTUS [Suspect]
     Active Substance: INSULIN GLARGINE
     Indication: TYPE 2 DIABETES MELLITUS
     Dosage: 14 IU, QOD (EVERY OTHER EVENING)
     Route: 065
     Dates: start: 20100107
  3. LANTUS [Suspect]
     Active Substance: INSULIN GLARGINE
     Dosage: SUPPOSED TO RECEIVE 12 UNITS, HOWEVER THE PEN STOPPED AT 4 UNITS
     Route: 065

REACTIONS (6)
  - Gait disturbance [Recovering/Resolving]
  - Discomfort [Recovering/Resolving]
  - Inappropriate schedule of product administration [Unknown]
  - Device issue [Recovering/Resolving]
  - Incorrect dose administered by device [Recovering/Resolving]
  - Blood glucose increased [Recovering/Resolving]

NARRATIVE: CASE EVENT DATE: 20100107
